FAERS Safety Report 22305747 (Version 3)
Quarter: 2024Q4

REPORT INFORMATION
  Report Type: Report from Study
  Country: US (occurrence: US)
  Receive Date: 20230510
  Receipt Date: 20241029
  Transmission Date: 20250115
  Serious: Yes (Hospitalization, Other)
  Sender: TAKEDA
  Company Number: US-TAKEDA-US201800346

PATIENT
  Age: 57 Year
  Sex: Male

DRUGS (2)
  1. HUMAN IMMUNOGLOBULIN G\HYALURONIDASE RECOMBINANT HUMAN [Suspect]
     Active Substance: HUMAN IMMUNOGLOBULIN G\HYALURONIDASE (HUMAN RECOMBINANT)
     Indication: Primary immunodeficiency syndrome
     Dosage: UNK
     Route: 065
  2. GAMMAGARD LIQUID [Suspect]
     Active Substance: HUMAN IMMUNOGLOBULIN G
     Indication: Primary immunodeficiency syndrome
     Dosage: UNK
     Route: 042

REACTIONS (12)
  - COVID-19 [Not Recovered/Not Resolved]
  - Pneumonia [Unknown]
  - Renal aneurysm [Unknown]
  - Aortic aneurysm [Unknown]
  - Pancreatic cyst [Unknown]
  - Hepatic cyst [Unknown]
  - Nasopharyngitis [Unknown]
  - Immunoglobulins decreased [Unknown]
  - Weight decreased [Unknown]
  - Sinusitis [Unknown]
  - Wound [Unknown]
  - Cough [Unknown]

NARRATIVE: CASE EVENT DATE: 20180105
